FAERS Safety Report 9094978 (Version 1)
Quarter: 2013Q1

REPORT INFORMATION
  Report Type: Spontaneous
  Country: US (occurrence: None)
  Receive Date: 20130215
  Receipt Date: 20130215
  Transmission Date: 20140127
  Serious: Yes (Other)
  Sender: FDA-Public Use
  Company Number: None

PATIENT
  Age: 66 Year
  Sex: Female
  Weight: 56.7 kg

DRUGS (1)
  1. FLAGYL [Suspect]
     Indication: VAGINITIS BACTERIAL
     Route: 048
     Dates: start: 20130208, end: 20130210

REACTIONS (13)
  - Dry mouth [None]
  - Dysphagia [None]
  - Speech disorder [None]
  - Lip swelling [None]
  - Buccal mucosal roughening [None]
  - Stomatitis [None]
  - Product taste abnormal [None]
  - Glossodynia [None]
  - Oral mucosal blistering [None]
  - Lip blister [None]
  - Swelling face [None]
  - Pruritus [None]
  - Fear [None]
